FAERS Safety Report 8980332 (Version 1)
Quarter: 2012Q4

REPORT INFORMATION
  Report Type: 
  Country: US (occurrence: US)
  Receive Date: 20121221
  Receipt Date: 20121221
  Transmission Date: 20130627
  Serious: No
  Sender: FDA-Public Use
  Company Number: US-B.I. PHARMACEUTICALS,INC./RIDGEFIELD-2012-BI-03149BP

PATIENT
  Age: 54 Year
  Sex: Male
  Weight: 127 kg

DRUGS (1)
  1. SPIRIVA [Suspect]
     Indication: LUNG DISORDER
     Dosage: 18 mcg
     Route: 055
     Dates: start: 201212

REACTIONS (3)
  - Pallor [Not Recovered/Not Resolved]
  - Headache [Not Recovered/Not Resolved]
  - Fatigue [Not Recovered/Not Resolved]
